FAERS Safety Report 21777834 (Version 2)
Quarter: 2023Q1

REPORT INFORMATION
  Report Type: Spontaneous
  Country: US (occurrence: US)
  Receive Date: 20221226
  Receipt Date: 20230110
  Transmission Date: 20230418
  Serious: Yes (Other)
  Sender: FDA-Public Use
  Company Number: US-Accord-293432

PATIENT
  Age: 86 Year
  Sex: Female
  Weight: 56.25 kg

DRUGS (4)
  1. MYCOPHENOLIC ACID [Suspect]
     Active Substance: MYCOPHENOLIC ACID
     Indication: Product used for unknown indication
     Dosage: 500 MG TWICE A WEEK
     Dates: start: 20220616
  2. FAMOTIDINE [Concomitant]
     Active Substance: FAMOTIDINE
     Dosage: 60MG 5 TIMES A DAY
  3. ROLAIDS [Concomitant]
     Active Substance: CALCIUM CARBONATE\MAGNESIUM HYDROXIDE
  4. PREDNISONE [Concomitant]
     Active Substance: PREDNISONE
     Dosage: 10MG

REACTIONS (7)
  - Joint swelling [Unknown]
  - Oedema peripheral [Unknown]
  - Nausea [Unknown]
  - Diarrhoea [Unknown]
  - Weight decreased [Unknown]
  - Abdominal distension [Unknown]
  - Neoplasm malignant [Unknown]
